FAERS Safety Report 6742006-3 (Version None)
Quarter: 2010Q2

REPORT INFORMATION
  Report Type: 
  Country: None (occurrence: None)
  Receive Date: 20100526
  Receipt Date: 20100517
  Transmission Date: 20101027
  Serious: Yes (Other)
  Sender: FDA-Public Use
  Company Number: MX-JNJFOC-20100404644

PATIENT
  Age: 16 Year
  Sex: Male

DRUGS (3)
  1. CAELYX [Suspect]
     Indication: HODGKIN'S DISEASE STAGE III
     Route: 042
  2. DIPHENHYDRAMINE [Concomitant]
     Indication: PREMEDICATION
     Route: 065
  3. HYDROCORTISONE [Concomitant]
     Indication: PREMEDICATION
     Route: 065

REACTIONS (5)
  - INFUSION RELATED REACTION [None]
  - LARYNGEAL OEDEMA [None]
  - OFF LABEL USE [None]
  - RASH [None]
  - RESPIRATORY FAILURE [None]
